FAERS Safety Report 23180099 (Version 3)
Quarter: 2023Q4

REPORT INFORMATION
  Report Type: Report from Study
  Country: JP (occurrence: JP)
  Receive Date: 20231114
  Receipt Date: 20231221
  Transmission Date: 20240110
  Serious: Yes (Hospitalization)
  Sender: FDA-Public Use
  Company Number: JP-ABBVIE-5488646

PATIENT
  Age: 74 Year
  Sex: Male
  Weight: 59 kg

DRUGS (12)
  1. CARBIDOPA\LEVODOPA [Suspect]
     Active Substance: CARBIDOPA\LEVODOPA
     Indication: Parkinson^s disease
     Dosage: MD: 9.0 ML, CD: 3.6 ML/HR ? 16 HRS, ED: 1.0 ML/UNIT ? 1
     Route: 050
     Dates: start: 20211119, end: 20211230
  2. CARBIDOPA\LEVODOPA [Suspect]
     Active Substance: CARBIDOPA\LEVODOPA
     Dosage: MD: 9 ML, CD: 4.0 ML/HR ? 14 HRS, ED: 1.0 ML/UNIT ? 3
     Route: 050
     Dates: start: 20210517, end: 20211119
  3. CARBIDOPA\LEVODOPA [Suspect]
     Active Substance: CARBIDOPA\LEVODOPA
     Route: 050
     Dates: start: 20191018, end: 20191018
  4. CARBIDOPA\LEVODOPA [Suspect]
     Active Substance: CARBIDOPA\LEVODOPA
     Dosage: MD: 9.0 ML, CD: 2.5 ML/HR ? 16 HRS, ED: 1.0 ML/UNIT ? 1
     Route: 050
     Dates: start: 20200123
  5. CARBIDOPA\LEVODOPA [Suspect]
     Active Substance: CARBIDOPA\LEVODOPA
     Dosage: MD: 9.0 ML, CD: 2.5 ML/HR ? 16 HRS, ED: 1.0 ML/UNIT ? 1
     Route: 050
     Dates: start: 20191019, end: 20191027
  6. METHYLCOBALAMIN [Concomitant]
     Active Substance: METHYLCOBALAMIN
     Indication: Product used for unknown indication
     Dosage: 1.5 MILLIGRAM
     Dates: end: 20211230
  7. LUBIPROSTONE [Concomitant]
     Active Substance: LUBIPROSTONE
     Indication: Product used for unknown indication
     Dates: end: 20211230
  8. Zonisamide ex [Concomitant]
     Indication: Parkinson^s disease
     Dosage: 25 MILLIGRAM
     Dates: end: 20211230
  9. Zonisamide ex [Concomitant]
     Indication: Parkinson^s disease
     Dosage: 50 MILLIGRAM
  10. ISTRADEFYLLINE [Concomitant]
     Active Substance: ISTRADEFYLLINE
     Indication: Parkinson^s disease
     Dosage: FORM STRENGTH: 20 MILLIGRAM
     Dates: end: 20211230
  11. TOCOPHERYL NICOTINATE [Concomitant]
     Active Substance: TOCOPHERYL NICOTINATE, D-.ALPHA.
     Indication: Product used for unknown indication
     Dosage: 300 MILLIGRAM
     Dates: end: 20211230
  12. BENSERAZIDE HYDROCHLORIDE\LEVODOPA [Concomitant]
     Active Substance: BENSERAZIDE HYDROCHLORIDE\LEVODOPA
     Indication: Parkinson^s disease
     Dosage: 500 MILLIGRAM
     Dates: start: 20191028, end: 20200122

REACTIONS (2)
  - Ileus [Not Recovered/Not Resolved]
  - Nausea [Recovered/Resolved]

NARRATIVE: CASE EVENT DATE: 20211119
